FAERS Safety Report 11180353 (Version 1)
Quarter: 2015Q2

REPORT INFORMATION
  Report Type: Spontaneous
  Country: DE (occurrence: None)
  Receive Date: 20150609
  Receipt Date: 20150609
  Transmission Date: 20150821
  Serious: Yes (Other)
  Sender: FDA-Public Use
  Company Number: DE-H14001-15-00868

PATIENT
  Age: 66 Year
  Sex: Male
  Weight: 65 kg

DRUGS (5)
  1. PREDNISONE (PREDNISONE) (UNKNOWN) (PREDNISONE) [Suspect]
     Active Substance: PREDNISONE
     Indication: CHEMOTHERAPY
     Route: 048
     Dates: start: 20150318, end: 20150322
  2. VINCRISTIN (VINCRISTINE SULFATE) [Suspect]
     Active Substance: VINCRISTINE SULFATE
     Indication: CHEMOTHERAPY
     Route: 042
     Dates: start: 20150318, end: 20150318
  3. CYCLOPHOSPHAMIDE. [Suspect]
     Active Substance: CYCLOPHOSPHAMIDE
     Indication: CHEMOTHERAPY
     Route: 042
     Dates: start: 20150318, end: 20150318
  4. DOXORUBICIN (DOXORUBICIN) (UNKNOWN) (DOXORUBICIN) [Suspect]
     Active Substance: DOXORUBICIN
     Indication: CHEMOTHERAPY
     Route: 042
     Dates: start: 20150318, end: 20150318
  5. RITUXIMAB (RITUXIMAB) (UNKNOWN) (RITUXIMAB) [Suspect]
     Active Substance: RITUXIMAB
     Indication: CHEMOTHERAPY
     Route: 042
     Dates: start: 20150317, end: 20150317

REACTIONS (3)
  - Hepatic fibrosis [None]
  - Chronic hepatitis [None]
  - Drug-induced liver injury [None]

NARRATIVE: CASE EVENT DATE: 2015
